FAERS Safety Report 8429571-5 (Version None)
Quarter: 2012Q2

REPORT INFORMATION
  Report Type: 
  Country: None (occurrence: None)
  Receive Date: 20120612
  Receipt Date: 20120604
  Transmission Date: 20120825
  Serious: Yes (Life-Threatening, Other)
  Sender: FDA-Public Use
  Company Number: US-JNJFOC-20120302662

PATIENT
  Sex: Female

DRUGS (18)
  1. ALLOPURINOL [Concomitant]
     Route: 048
  2. OXYCODONE HCL [Concomitant]
     Dosage: TWICE DAILY OR AS NEEDED
     Route: 048
  3. BACLOFEN [Concomitant]
     Route: 048
  4. PROZAC [Suspect]
     Route: 048
     Dates: start: 20111110, end: 20120127
  5. PROTONIX [Concomitant]
     Route: 048
  6. RANITIDINE [Concomitant]
     Route: 048
  7. INVEGA SUSTENNA [Suspect]
     Indication: PSYCHOTIC DISORDER
     Route: 030
     Dates: start: 20110811
  8. PROZAC [Suspect]
     Indication: DEPRESSION
     Route: 048
     Dates: end: 20120302
  9. INVEGA SUSTENNA [Suspect]
     Indication: SCHIZOAFFECTIVE DISORDER
     Route: 030
     Dates: start: 20110811
  10. ACETAMINOPHEN [Suspect]
     Route: 065
  11. ACETAMINOPHEN [Suspect]
     Indication: PAIN
     Route: 065
     Dates: end: 20120101
  12. PRIMIDONE [Concomitant]
     Route: 048
  13. VESICARE [Concomitant]
     Route: 048
  14. FENOFIBRATE [Concomitant]
     Route: 048
  15. VALIUM [Concomitant]
     Route: 048
  16. SINGULAIR [Concomitant]
     Route: 048
  17. PHENERGAN [Concomitant]
     Route: 048
  18. CARAFATE [Concomitant]
     Route: 048

REACTIONS (2)
  - HEPATIC STEATOSIS [None]
  - ABNORMAL WEIGHT GAIN [None]
